FAERS Safety Report 4524779-3 (Version None)
Quarter: 2004Q4

REPORT INFORMATION
  Report Type: 
  Country: None (occurrence: None)
  Receive Date: 20041208
  Receipt Date: 20041129
  Transmission Date: 20050328
  Serious: Yes (Disabling)
  Sender: FDA-Public Use
  Company Number: 2004-122956- NL

PATIENT
  Age: 68 Year
  Sex: Male

DRUGS (3)
  1. MIRTAZAPINE [Suspect]
     Indication: MAJOR DEPRESSION
     Dosage: 15 MG ORAL
     Route: 048
     Dates: start: 20040726, end: 20041028
  2. MIRTAZAPINE [Suspect]
     Indication: PANIC DISORDER
     Dosage: 15 MG ORAL
     Route: 048
     Dates: start: 20040726, end: 20041028
  3. ACETYLSALICYLIC ACID [Concomitant]

REACTIONS (3)
  - DEAFNESS NEUROSENSORY [None]
  - DEAFNESS UNILATERAL [None]
  - PRESBYACUSIS [None]
